FAERS Safety Report 7687046-5 (Version None)
Quarter: 2011Q3

REPORT INFORMATION
  Report Type: 
  Country: None (occurrence: None)
  Receive Date: 20110816
  Receipt Date: 20110809
  Transmission Date: 20111222
  Serious: Yes (Death, Life-Threatening, Other)
  Sender: FDA-Public Use
  Company Number: NL-GENZYME-200821167GPV

PATIENT
  Sex: Male

DRUGS (39)
  1. CAMPATH [Suspect]
     Indication: ANGIOIMMUNOBLASTIC T-CELL LYMPHOMA STAGE III
     Dosage: 3 MG, DAY 1
     Route: 058
  2. CYCLOPHOSPHAMIDE [Suspect]
     Indication: ANGIOIMMUNOBLASTIC T-CELL LYMPHOMA STAGE III
     Dosage: 750 MG/M2, ONCE DAY 1
     Route: 042
  3. CYCLOPHOSPHAMIDE [Suspect]
     Dosage: 750 MG/M2, ONCE DAY 1
     Route: 042
  4. METHYLPREDNISOLONE [Suspect]
     Dosage: 100 MG, QDX5, DAYS 1-5
     Route: 048
  5. DOXORUBICIN HCL [Suspect]
     Dosage: 50 MG/M2, ONCE DAY 1
     Route: 042
  6. DOXORUBICIN HCL [Suspect]
     Dosage: 50 MG/M2, ONCE DAY 1
     Route: 042
  7. VINCRISTINE [Suspect]
     Dosage: 1.4 MG/M2, ONCE DAY 1
     Route: 042
  8. VINCRISTINE [Suspect]
     Dosage: 1.4 MG/M2, ONCE DAY 1
     Route: 042
     Dates: end: 20060401
  9. COTRIM [Concomitant]
     Indication: INFECTION PROPHYLAXIS
     Dosage: 480 MG, BID, 3X/W
  10. CAMPATH [Suspect]
     Dosage: 10 MG, DAY 5
     Route: 058
  11. CAMPATH [Suspect]
     Dosage: 30 MG, DAYS 1, 5, 10
     Route: 058
  12. CYCLOPHOSPHAMIDE [Suspect]
     Dosage: 750 MG/M2, ONCE DAY 1
     Route: 042
  13. DOXORUBICIN HCL [Suspect]
     Dosage: 50 MG/M2, ONCE DAY 1
     Route: 042
  14. VINCRISTINE [Suspect]
     Dosage: 1.4 MG/M2, ONCE DAY 1
     Route: 042
  15. DOXORUBICIN HCL [Suspect]
     Dosage: 50 MG/M2, ONCE DAY 1
     Route: 042
     Dates: end: 20060401
  16. METHYLPREDNISOLONE [Suspect]
     Dosage: 100 MG, QDX5, DAYS 1-5
     Route: 048
  17. ANTIHISTAMINES [Concomitant]
     Indication: PREMEDICATION
  18. CAMPATH [Suspect]
     Dosage: 30 MG, DAY 10
     Route: 058
  19. CYCLOPHOSPHAMIDE [Suspect]
     Dosage: 750 MG/M2, ONCE DAY 1
     Route: 042
  20. VINCRISTINE [Suspect]
     Dosage: 1.4 MG/M2, ONCE DAY 1
     Route: 042
  21. METHYLPREDNISOLONE [Suspect]
     Indication: ANGIOIMMUNOBLASTIC T-CELL LYMPHOMA STAGE III
     Dosage: 100 MG, QDX5, DAYS 1-5
     Route: 048
  22. METHYLPREDNISOLONE [Suspect]
     Dosage: 100 MG, QDX5, DAYS 1-5
     Route: 048
     Dates: end: 20060401
  23. FLUCONAZOLE [Concomitant]
     Indication: ANTIFUNGAL PROPHYLAXIS
     Dosage: UNK
  24. PEGFILGRASTIM [Concomitant]
     Indication: PRODUCT USED FOR UNKNOWN INDICATION
     Dosage: 6 MG, ONCE, DAY 2
     Route: 058
     Dates: end: 20060401
  25. ALLOPURINOL [Concomitant]
     Indication: PROPHYLAXIS
     Dosage: 300 MG, UNK
  26. CAMPATH [Suspect]
     Dosage: 30 MG, DAYS 1, 5, 10
     Route: 058
     Dates: end: 20060401
  27. METHYLPREDNISOLONE [Suspect]
     Dosage: 100 MG, QDX5, DAYS 1-5
     Route: 048
  28. CAMPATH [Suspect]
     Dosage: 30 MG, DAYS 1, 5, 10
     Route: 058
  29. CAMPATH [Suspect]
     Dosage: 30 MG, DAYS 1, 5, 10
     Route: 058
  30. CYCLOPHOSPHAMIDE [Suspect]
     Dosage: 750 MG/M2, ONCE DAY 1
     Route: 042
     Dates: end: 20060401
  31. VINCRISTINE [Suspect]
     Dosage: 1.4 MG/M2, ONCE DAY 1
     Route: 042
  32. ACETAMINOPHEN [Concomitant]
     Indication: PREMEDICATION
     Dosage: 1000 MG, UNK
  33. CAMPATH [Suspect]
     Dosage: 30 MG, DAYS 1, 5, 10
     Route: 058
  34. CYCLOPHOSPHAMIDE [Suspect]
     Dosage: 750 MG/M2, ONCE DAY 1
     Route: 042
  35. DOXORUBICIN HCL [Suspect]
     Indication: ANGIOIMMUNOBLASTIC T-CELL LYMPHOMA STAGE III
     Dosage: 50 MG/M2, ONCE DAY 1
     Route: 042
  36. DOXORUBICIN HCL [Suspect]
     Dosage: 50 MG/M2, ONCE DAY 1
     Route: 042
  37. VINCRISTINE [Suspect]
     Indication: ANGIOIMMUNOBLASTIC T-CELL LYMPHOMA STAGE III
     Dosage: 1.4 MG/M2, ONCE DAY 1
     Route: 042
  38. METHYLPREDNISOLONE [Suspect]
     Dosage: 100 MG, QDX5, DAYS 1-5
     Route: 048
  39. VALACICLOVIR [Concomitant]
     Indication: ANTIVIRAL PROPHYLAXIS
     Dosage: 500 MG, BID

REACTIONS (5)
  - EPSTEIN-BARR VIRUS INFECTION [None]
  - ANGIOIMMUNOBLASTIC T-CELL LYMPHOMA RECURRENT [None]
  - LYMPHOPROLIFERATIVE DISORDER [None]
  - CYTOMEGALOVIRUS INFECTION [None]
  - CYTOMEGALOVIRUS CHORIORETINITIS [None]
